FAERS Safety Report 6393988-3 (Version None)
Quarter: 2009Q4

REPORT INFORMATION
  Report Type: 
  Country: None (occurrence: None)
  Receive Date: 20091008
  Receipt Date: 20091008
  Transmission Date: 20100525
  Serious: Yes (Life-Threatening, Hospitalization)
  Sender: FDA-Public Use
  Company Number: DE-WYE-G04140109

PATIENT
  Sex: Male
  Weight: 75 kg

DRUGS (13)
  1. TORISEL [Suspect]
     Indication: METASTATIC RENAL CELL CARCINOMA
     Route: 042
     Dates: start: 20090630, end: 20090630
  2. TORISEL [Suspect]
     Route: 042
     Dates: start: 20090709, end: 20090709
  3. TORISEL [Suspect]
     Route: 042
     Dates: start: 20090714, end: 20090721
  4. TORISEL [Suspect]
     Route: 042
     Dates: start: 20090811, end: 20090825
  5. BISOPROLOL FUMARATE [Concomitant]
     Route: 048
  6. PIRETANIDE [Concomitant]
     Route: 048
  7. L-THYROXIN [Concomitant]
     Route: 048
  8. SIMVASTATIN [Concomitant]
     Route: 048
  9. AERIUS [Concomitant]
     Indication: PREMEDICATION
     Dates: start: 20090630, end: 20090630
  10. AERIUS [Concomitant]
     Dates: start: 20090709, end: 20090709
  11. AERIUS [Concomitant]
     Dates: start: 20090714, end: 20090721
  12. AERIUS [Concomitant]
     Dates: start: 20090811, end: 20090825
  13. ACETYLSALICYLIC ACID [Concomitant]
     Route: 048

REACTIONS (5)
  - ANAEMIA [None]
  - ASCITES [None]
  - CONDITION AGGRAVATED [None]
  - HYPERKALAEMIA [None]
  - IDIOPATHIC THROMBOCYTOPENIC PURPURA [None]
